FAERS Safety Report 4322673-4 (Version None)
Quarter: 2004Q1

REPORT INFORMATION
  Report Type: 
  Country: None (occurrence: None)
  Receive Date: 20040324
  Receipt Date: 20040224
  Transmission Date: 20041129
  Serious: Yes (Hospitalization)
  Sender: FDA-Public Use
  Company Number: FR-BRISTOL-MYERS SQUIBB COMPANY-12515946

PATIENT
  Age: 81 Year
  Sex: Female

DRUGS (10)
  1. ELISOR [Suspect]
     Route: 048
  2. CORDARONE [Suspect]
     Route: 048
     Dates: start: 20031128
  3. PREVISCAN [Suspect]
     Route: 048
     Dates: start: 20030715, end: 20031208
  4. OFLOCET [Suspect]
  5. ATACAND [Concomitant]
     Dates: start: 20031128
  6. CARDENSIEL [Concomitant]
  7. FUROSEMIDE [Concomitant]
  8. QVAR 40 [Concomitant]
  9. FORADIL [Concomitant]
  10. STILNOX [Concomitant]

REACTIONS (4)
  - HYPOPROTHROMBINAEMIA [None]
  - LIVER DISORDER [None]
  - LUNG DISORDER [None]
  - RESPIRATORY FAILURE [None]
